FAERS Safety Report 11871878 (Version 1)
Quarter: 2015Q4

REPORT INFORMATION
  Report Type: Spontaneous
  Country: CA (occurrence: CA)
  Receive Date: 20151228
  Receipt Date: 20151228
  Transmission Date: 20160305
  Serious: Yes (Congenital Anomaly, Other)
  Sender: FDA-Public Use
  Company Number: CA-GLAXOSMITHKLINE-CA2015GSK180624

PATIENT
  Sex: Male

DRUGS (1)
  1. LAMICTAL [Suspect]
     Active Substance: LAMOTRIGINE
     Indication: PRODUCT USED FOR UNKNOWN INDICATION
     Dosage: 50 MG, 1D
     Route: 048

REACTIONS (5)
  - Cleft lip [Recovered/Resolved]
  - Foetal exposure during pregnancy [Recovered/Resolved]
  - Lip repair [Recovered/Resolved]
  - Plastic surgery to the face [Recovered/Resolved]
  - Dental alveolar anomaly [Recovered/Resolved]
